FAERS Safety Report 5370434-X (Version None)
Quarter: 2007Q2

REPORT INFORMATION
  Report Type: 
  Country: None (occurrence: None)
  Receive Date: 20070626
  Receipt Date: 20070430
  Transmission Date: 20071010
  Serious: No
  Sender: FDA-Public Use
  Company Number: US-AMGEN-US222231

PATIENT
  Sex: Female

DRUGS (8)
  1. ARANESP [Suspect]
     Indication: RENAL FAILURE CHRONIC
     Route: 065
  2. OXYCONTIN [Concomitant]
     Route: 065
  3. ELAVIL [Concomitant]
     Route: 065
  4. LORTAB [Concomitant]
     Route: 065
  5. NEXIUM [Concomitant]
     Route: 065
  6. FLEXERIL [Concomitant]
     Route: 065
  7. CONCERTA [Concomitant]
     Route: 065
  8. EFFEXOR [Concomitant]
     Route: 065

REACTIONS (1)
  - HAEMOGLOBIN DECREASED [None]
